FAERS Safety Report 17038122 (Version 1)
Quarter: 2019Q4

REPORT INFORMATION
  Report Type: Spontaneous
  Country: US (occurrence: US)
  Receive Date: 20191115
  Receipt Date: 20191115
  Transmission Date: 20200122
  Serious: Yes (Other)
  Sender: FDA-Public Use
  Company Number: US-TAIHO ONCOLOGY  INC-EU-2019-03763

PATIENT
  Age: 82 Year
  Sex: Male

DRUGS (1)
  1. LONSURF [Suspect]
     Active Substance: TIPIRACIL HYDROCHLORIDE\TRIFLURIDINE
     Indication: PRODUCT USED FOR UNKNOWN INDICATION
     Dosage: LAST CYCLE STARTED ON 04/NOV/2019. LONSURF INTERRUPTED 3 DAYS LATER. LONSURF STRENGTH: 20 AND 15MG
     Route: 048
     Dates: start: 20190605

REACTIONS (2)
  - Cardiac failure congestive [Unknown]
  - Respiratory tract infection [Unknown]

NARRATIVE: CASE EVENT DATE: 201911
